FAERS Safety Report 9111110 (Version 1)
Quarter: 2013Q1

REPORT INFORMATION
  Report Type: Spontaneous
  Country: US (occurrence: US)
  Receive Date: 20130219
  Receipt Date: 20130219
  Transmission Date: 20140127
  Serious: No
  Sender: FDA-Public Use
  Company Number: US-BRISTOL-MYERS SQUIBB COMPANY-16918328

PATIENT
  Age: 83 Year
  Sex: Female

DRUGS (6)
  1. ORENCIA [Suspect]
     Indication: RHEUMATOID ARTHRITIS
     Route: 058
     Dates: start: 2012
  2. TERAZOSIN [Concomitant]
  3. DIOVAN [Concomitant]
  4. VITAMINS [Concomitant]
  5. FOLIC ACID [Concomitant]
  6. AMLODIPINE [Concomitant]

REACTIONS (1)
  - Weight increased [Not Recovered/Not Resolved]
